FAERS Safety Report 5401942-0 (Version None)
Quarter: 2007Q3

REPORT INFORMATION
  Report Type: 
  Country: None (occurrence: None)
  Receive Date: 20070726
  Receipt Date: 20070717
  Transmission Date: 20080115
  Serious: Yes (Life-Threatening)
  Sender: FDA-Public Use
  Company Number: 100#08#2007-02742

PATIENT
  Age: 57 Year
  Sex: Male

DRUGS (4)
  1. PROCHLORPERAZINE [Suspect]
     Indication: PAIN
  2. IMIPRAMINE [Suspect]
     Indication: PAIN
  3. NSAID'S (NSAID'S) (NSAID'S) [Concomitant]
  4. MORPHINE [Concomitant]

REACTIONS (3)
  - HALLUCINATION [None]
  - NEUROLEPTIC MALIGNANT SYNDROME [None]
  - RHABDOMYOLYSIS [None]
